FAERS Safety Report 10044876 (Version 2)
Quarter: 2014Q1

REPORT INFORMATION
  Report Type: Spontaneous
  Country: US (occurrence: US)
  Receive Date: 20140328
  Receipt Date: 20140328
  Transmission Date: 20141002
  Serious: Yes (Hospitalization)
  Sender: FDA-Public Use
  Company Number: US-GLAXOSMITHKLINE-A0870731A

PATIENT
  Age: 69 Year
  Sex: Male
  Weight: 150 kg

DRUGS (1)
  1. AVANDIA [Suspect]
     Indication: TYPE 2 DIABETES MELLITUS
     Dosage: 4MG PER DAY
     Route: 048
     Dates: start: 2001, end: 2007

REACTIONS (3)
  - Cardiac failure congestive [Not Recovered/Not Resolved]
  - Coronary artery stenosis [Unknown]
  - Cardiomyopathy [Unknown]
